FAERS Safety Report 26064442 (Version 1)
Quarter: 2025Q4

REPORT INFORMATION
  Report Type: Spontaneous
  Country: TH (occurrence: TH)
  Receive Date: 20251119
  Receipt Date: 20251119
  Transmission Date: 20260117
  Serious: Yes (Other)
  Sender: ACCORD
  Company Number: TH-MLMSERVICE-20251031-PI694922-00275-1

PATIENT
  Age: 27 Year
  Sex: Male

DRUGS (18)
  1. QUETIAPINE [Suspect]
     Active Substance: QUETIAPINE
     Indication: Bipolar I disorder
  2. VALPROATE SODIUM [Concomitant]
     Active Substance: VALPROATE SODIUM
     Indication: Bipolar I disorder
  3. TRIHEXYPHENIDYL [Concomitant]
     Active Substance: TRIHEXYPHENIDYL
     Indication: Bipolar I disorder
  4. QUETIAPINE [Suspect]
     Active Substance: QUETIAPINE
     Indication: Mania
  5. TRIHEXYPHENIDYL [Concomitant]
     Active Substance: TRIHEXYPHENIDYL
     Indication: Mania
  6. VALPROATE SODIUM [Concomitant]
     Active Substance: VALPROATE SODIUM
     Indication: Mania
  7. VALPROATE SODIUM [Concomitant]
     Active Substance: VALPROATE SODIUM
     Indication: Psychotic symptom
  8. TRIHEXYPHENIDYL [Concomitant]
     Active Substance: TRIHEXYPHENIDYL
     Indication: Psychotic symptom
  9. QUETIAPINE [Suspect]
     Active Substance: QUETIAPINE
     Indication: Psychotic symptom
  10. QUETIAPINE [Suspect]
     Active Substance: QUETIAPINE
     Indication: Mania
     Dosage: TITRATED DOWN TO 400 MG/DAY
  11. QUETIAPINE [Suspect]
     Active Substance: QUETIAPINE
     Indication: Psychotic symptom
     Dosage: TITRATED DOWN TO 400 MG/DAY
  12. QUETIAPINE [Suspect]
     Active Substance: QUETIAPINE
     Indication: Bipolar I disorder
     Dosage: LATER INCREASED TO 550 MG/DAY AS A RESULT OF AN EMOTIONAL OUTBURST
  13. QUETIAPINE [Suspect]
     Active Substance: QUETIAPINE
     Indication: Mania
     Dosage: LATER INCREASED TO 550 MG/DAY AS A RESULT OF AN EMOTIONAL OUTBURST
  14. VALPROATE SODIUM [Concomitant]
     Active Substance: VALPROATE SODIUM
     Indication: Bipolar I disorder
     Dosage: TITRATED DOWN TO 1000 MG/DAY
  15. VALPROATE SODIUM [Concomitant]
     Active Substance: VALPROATE SODIUM
     Indication: Mania
     Dosage: TITRATED DOWN TO 1000 MG/DAY
  16. VALPROATE SODIUM [Concomitant]
     Active Substance: VALPROATE SODIUM
     Indication: Psychotic symptom
     Dosage: TITRATED DOWN TO 1000 MG/DAY
  17. QUETIAPINE [Suspect]
     Active Substance: QUETIAPINE
     Indication: Bipolar I disorder
     Dosage: TITRATED DOWN TO 400 MG/DAY
  18. QUETIAPINE [Suspect]
     Active Substance: QUETIAPINE
     Indication: Psychotic symptom
     Dosage: LATER INCREASED TO 550 MG/DAY AS A RESULT OF AN EMOTIONAL OUTBURST

REACTIONS (1)
  - Colitis ischaemic [Unknown]
